FAERS Safety Report 13906079 (Version 1)
Quarter: 2017Q3

REPORT INFORMATION
  Report Type: Spontaneous
  Country: US (occurrence: US)
  Receive Date: 20170825
  Receipt Date: 20170825
  Transmission Date: 20171127
  Serious: Yes (Other)
  Sender: FDA-Public Use
  Company Number: US-PFIZER INC-2017361800

PATIENT
  Age: 60 Year
  Sex: Female

DRUGS (1)
  1. TESSALON [Suspect]
     Active Substance: BENZONATATE
     Dosage: 100 MG, UNK

REACTIONS (8)
  - Joint swelling [Unknown]
  - Joint stiffness [Unknown]
  - Movement disorder [Unknown]
  - Hypertension [Unknown]
  - Synovial disorder [Unknown]
  - Arthropathy [Unknown]
  - Synovitis [Unknown]
  - Arthralgia [Unknown]
